FAERS Safety Report 5099327-2 (Version None)
Quarter: 2006Q3

REPORT INFORMATION
  Report Type: 
  Country: None (occurrence: None)
  Receive Date: 20060726
  Receipt Date: 20060330
  Transmission Date: 20061208
  Serious: No
  Sender: FDA-Public Use
  Company Number: 012193

PATIENT
  Sex: Female

DRUGS (6)
  1. PRIALT [Suspect]
     Indication: PAIN
     Dosage: 0.1 UG, ONCE/HOUR, INTRATHECAL
     Route: 037
     Dates: start: 20050401, end: 20050715
  2. SUFENTANIL (SUFENTANIL) [Concomitant]
  3. FENTANYL [Concomitant]
  4. PROZAC [Concomitant]
  5. XANAX [Concomitant]
  6. METHADONE HCL [Concomitant]

REACTIONS (1)
  - MOOD ALTERED [None]
